FAERS Safety Report 8515550-6 (Version None)
Quarter: 2012Q3

REPORT INFORMATION
  Report Type: 
  Country: None (occurrence: None)
  Receive Date: 20120717
  Receipt Date: 20120709
  Transmission Date: 20120928
  Serious: Yes (Other)
  Sender: FDA-Public Use
  Company Number: PHHY2012BR060074

PATIENT
  Age: 46 Year
  Sex: Female

DRUGS (1)
  1. MIACALCIN [Suspect]
     Indication: OSTEOPOROSIS
     Dosage: UNK UKN, UNK

REACTIONS (5)
  - PAIN [None]
  - BREAST CANCER [None]
  - OSTEOPOROSIS [None]
  - GASTROINTESTINAL CARCINOMA [None]
  - NASAL DRYNESS [None]
